FAERS Safety Report 7027428-8 (Version None)
Quarter: 2010Q3

REPORT INFORMATION
  Report Type: 
  Country: None (occurrence: None)
  Receive Date: 20100930
  Receipt Date: 20100917
  Transmission Date: 20110219
  Serious: Yes (Hospitalization)
  Sender: FDA-Public Use
  Company Number: 2010S1000804

PATIENT
  Age: 45 Year
  Sex: Male

DRUGS (9)
  1. LIVALO [Suspect]
     Indication: HYPERCHOLESTEROLAEMIA
     Dosage: 2 MG; 1X; PO
     Route: 048
     Dates: start: 20050101, end: 20100909
  2. AMARYL [Concomitant]
  3. SITAGLIPTIN PHOSPHATE HYDRATE [Concomitant]
  4. BLOPRESS [Concomitant]
  5. ARTIST [Concomitant]
  6. LIRAGLUTIDE [Concomitant]
  7. METFORMIN HCL [Concomitant]
  8. ASPIRIN [Concomitant]
  9. DIGOXIN [Concomitant]

REACTIONS (1)
  - RHABDOMYOLYSIS [None]
